FAERS Safety Report 8249754-7 (Version None)
Quarter: 2012Q2

REPORT INFORMATION
  Report Type: 
  Country: None (occurrence: None)
  Receive Date: 20120402
  Receipt Date: 20120320
  Transmission Date: 20120825
  Serious: Yes (Hospitalization)
  Sender: FDA-Public Use
  Company Number: PHHY2012MX025774

PATIENT
  Sex: Male

DRUGS (2)
  1. DIOVAN HCT [Suspect]
     Indication: HYPERTENSION
     Dosage: 1 DF (160 MG VALSARTAN AND 12.5 MG HYDROCHLOROTHIAZIDE) DAILY
     Dates: start: 20080301, end: 20120301
  2. PLAVIX [Concomitant]
     Dosage: 1 DF, DAILY
     Dates: start: 20080301

REACTIONS (1)
  - GASTROINTESTINAL DISORDER [None]
